FAERS Safety Report 6760268-3 (Version None)
Quarter: 2010Q2

REPORT INFORMATION
  Report Type: 
  Country: None (occurrence: None)
  Receive Date: 20100608
  Receipt Date: 20090910
  Transmission Date: 20101027
  Serious: No
  Sender: FDA-Public Use
  Company Number: US-BRISTOL-MYERS SQUIBB COMPANY-14757801

PATIENT
  Age: 43 Year
  Sex: Male

DRUGS (7)
  1. SUSTIVA [Suspect]
     Indication: HIV INFECTION
     Route: 048
     Dates: start: 20090201
  2. ATRIPLA [Suspect]
     Indication: HIV INFECTION
     Dates: start: 20090201
  3. COUMADIN [Concomitant]
  4. LORATADINE [Concomitant]
  5. CAPTOPRIL [Concomitant]
  6. NASONEX [Concomitant]
  7. HYDROCHLOROTHIAZIDE [Concomitant]

REACTIONS (1)
  - NEUTROPENIA [None]
